FAERS Safety Report 9028759 (Version 1)
Quarter: 2013Q1

REPORT INFORMATION
  Report Type: Spontaneous
  Country: US (occurrence: US)
  Receive Date: 20130124
  Receipt Date: 20130124
  Transmission Date: 20140127
  Serious: Yes (Other)
  Sender: FDA-Public Use
  Company Number: US-PFIZER INC-2013024083

PATIENT
  Sex: Female

DRUGS (2)
  1. CELEBREX [Suspect]
     Dosage: UNK
     Dates: start: 20100105
  2. ZOLOFT [Suspect]
     Dosage: UNK
     Dates: start: 20100105

REACTIONS (2)
  - Gastric infection [Unknown]
  - Malaise [Unknown]
